FAERS Safety Report 10011794 (Version 1)
Quarter: 2014Q1

REPORT INFORMATION
  Report Type: Spontaneous
  Country: US (occurrence: None)
  Receive Date: 20140312
  Receipt Date: 20140312
  Transmission Date: 20141002
  Serious: Yes (Hospitalization, Other)
  Sender: FDA-Public Use
  Company Number: UTC-045684

PATIENT
  Age: 17 Year
  Sex: Male

DRUGS (4)
  1. TYVASO [Suspect]
     Indication: PULMONARY ARTERIAL HYPERTENSION
     Dosage: 9 BREATHES (4 IN 1 D)
     Route: 055
     Dates: start: 20100227, end: 2010
  2. REMODULIN [Suspect]
     Indication: PULMONARY ARTERIAL HYPERTENSION
     Dosage: (0.024 UG/KG, 1 IN 1 MIN)
     Route: 041
     Dates: start: 20101008
  3. SILDENAFIL (SILDENAFIL) [Concomitant]
  4. BOSENTAN (BOSENTAN) [Concomitant]

REACTIONS (11)
  - Lung transplant [None]
  - Dyspnoea exertional [None]
  - Chest injury [None]
  - Ventricular failure [None]
  - Oedema peripheral [None]
  - Catheterisation cardiac abnormal [None]
  - Hypoxia [None]
  - Ischaemia [None]
  - Pleural effusion [None]
  - Pulmonary arterial hypertension [None]
  - Condition aggravated [None]
